FAERS Safety Report 6432884-X (Version None)
Quarter: 2009Q4

REPORT INFORMATION
  Report Type: 
  Country: None (occurrence: None)
  Receive Date: 20091109
  Receipt Date: 20090303
  Transmission Date: 20100525
  Serious: Yes (Disabling, Other)
  Sender: FDA-Public Use
  Company Number: US-BAYER-200910310NA

PATIENT
  Age: 48 Year
  Sex: Male
  Weight: 73 kg

DRUGS (44)
  1. MAGNEVIST [Suspect]
     Indication: NUCLEAR MAGNETIC RESONANCE IMAGING
     Route: 042
     Dates: start: 20040615, end: 20040615
  2. MAGNEVIST [Suspect]
     Route: 042
     Dates: start: 20040617, end: 20040617
  3. MAGNEVIST [Suspect]
     Route: 042
     Dates: start: 20040710, end: 20040710
  4. MAGNEVIST [Suspect]
     Route: 042
     Dates: start: 20040711, end: 20040711
  5. MAGNEVIST [Suspect]
     Dates: start: 20040707, end: 20040707
  6. MAGNEVIST [Suspect]
     Route: 042
     Dates: start: 20040803, end: 20040803
  7. MAGNEVIST [Suspect]
     Dates: start: 20040612, end: 20040612
  8. OMNISCAN [Suspect]
     Indication: NUCLEAR MAGNETIC RESONANCE IMAGING
  9. OPTIMARK [Suspect]
     Indication: NUCLEAR MAGNETIC RESONANCE IMAGING
  10. MULTIHANCE [Suspect]
     Indication: NUCLEAR MAGNETIC RESONANCE IMAGING
  11. PROHANCE [Suspect]
     Indication: NUCLEAR MAGNETIC RESONANCE IMAGING
  12. ASPIRIN [Concomitant]
  13. WARFARIN SODIUM [Concomitant]
  14. AMIODARONE HCL [Concomitant]
  15. ARANESP [Concomitant]
     Indication: ANAEMIA
     Dosage: DOSE: 150 MCQ EVERY OTHER WEEK
  16. CALCITRIOL [Concomitant]
  17. CALCIUM CARBONATE [Concomitant]
  18. COREG [Concomitant]
  19. LISINOPRIL [Concomitant]
  20. MAG-OXIDE [Concomitant]
  21. NEXIUM [Concomitant]
  22. RENAPHRO [Concomitant]
     Dosage: DOSE: 1 CAP QD
     Route: 048
  23. TRAZODONE HCL [Concomitant]
  24. EPOGEN [Concomitant]
  25. IRON SUPPLEMENTS [Concomitant]
  26. APAP W/ CODEINE [Concomitant]
  27. DIGOXIN [Concomitant]
  28. HYDRALAZINE HCL [Concomitant]
  29. ZESTRIL [Concomitant]
     Dates: start: 20011201, end: 20020101
  30. PHOSLO [Concomitant]
     Dosage: DOSE: 667MG- 2 TABS TID
     Route: 048
  31. RENAGEL [Concomitant]
     Dosage: TOTAL DAILY DOSE: 2400 MG
     Route: 048
  32. LYRICA [Concomitant]
  33. VENOFER [Concomitant]
     Dosage: DOSE: 50MG/WEEK; FIRST RECORD THAT MENTIONED DRUG WAS IN JUN-2008
     Route: 042
  34. NEPHROCAP [Concomitant]
     Dosage: DOSE: 8 MCG
  35. VANCOMYCIN [Concomitant]
  36. INSULIN [Concomitant]
  37. FOLATE [Concomitant]
  38. THIAMINE [Concomitant]
  39. KAYEXALATE [Concomitant]
  40. LASIX [Concomitant]
  41. METOPROLOL [Concomitant]
  42. ZEMPLAR [Concomitant]
     Dosage: DOSE: 8 MCG TIW
  43. ULTRAVIST 300 [Concomitant]
     Indication: VENOGRAM
     Dates: start: 20070828, end: 20070828
  44. CONTRAST MEDIA [Concomitant]
     Indication: COMPUTERISED TOMOGRAM
     Dates: start: 20040601, end: 20040601

REACTIONS (26)
  - ANHEDONIA [None]
  - ANXIETY [None]
  - BONE PAIN [None]
  - DRY SKIN [None]
  - DYSSTASIA [None]
  - EMOTIONAL DISTRESS [None]
  - ERYTHEMA [None]
  - GENERAL PHYSICAL HEALTH DETERIORATION [None]
  - HYPOAESTHESIA [None]
  - JOINT CONTRACTURE [None]
  - JOINT RANGE OF MOTION DECREASED [None]
  - JOINT SWELLING [None]
  - MOBILITY DECREASED [None]
  - MOTOR DYSFUNCTION [None]
  - MUSCULAR WEAKNESS [None]
  - NEPHROGENIC SYSTEMIC FIBROSIS [None]
  - OEDEMA PERIPHERAL [None]
  - PAIN [None]
  - PARAESTHESIA [None]
  - PETECHIAE [None]
  - SCAR [None]
  - SKIN DISCOLOURATION [None]
  - SKIN DISORDER [None]
  - SKIN FIBROSIS [None]
  - SKIN HYPERTROPHY [None]
  - SKIN INDURATION [None]
